FAERS Safety Report 4751006-4 (Version None)
Quarter: 2005Q3

REPORT INFORMATION
  Report Type: 
  Country: None (occurrence: None)
  Receive Date: 20050824
  Receipt Date: 20050622
  Transmission Date: 20060218
  Serious: Yes (Hospitalization)
  Sender: FDA-Public Use
  Company Number: FR-BOEHRINGER INGELHEIM PHARMACEUTICALS, INC.-2005-FF-00462FF

PATIENT
  Sex: Male
  Weight: 73 kg

DRUGS (6)
  1. TIPRANAVIR + RITONAVIR CO-ADMIN [Suspect]
     Indication: HIV INFECTION
     Dosage: TPV/RTV: 500/200 MG B.I.D.
     Route: 048
     Dates: start: 20040427
  2. ABACAVIR [Concomitant]
     Indication: HIV INFECTION
     Route: 048
  3. DIDANOSINE [Concomitant]
     Indication: HIV INFECTION
     Route: 048
  4. TENOFOVIR [Concomitant]
     Indication: HIV INFECTION
     Route: 048
  5. INDINAVIR [Concomitant]
     Indication: HIV INFECTION
     Route: 048
  6. ENFUVIRTIDE [Concomitant]
     Indication: HIV INFECTION
     Route: 058

REACTIONS (1)
  - OSTEITIS [None]
